FAERS Safety Report 18732229 (Version 1)
Quarter: 2021Q1

REPORT INFORMATION
  Report Type: Spontaneous
  Country: US (occurrence: US)
  Receive Date: 20210112
  Receipt Date: 20210112
  Transmission Date: 20210419
  Serious: Yes (Death, Other)
  Sender: FDA-Public Use
  Company Number: US-PFIZER INC-2021014829

PATIENT
  Age: 49 Year
  Sex: Male

DRUGS (4)
  1. ZALEPLON. [Suspect]
     Active Substance: ZALEPLON
     Dosage: UNK
     Route: 048
  2. PARACETAMOL/SALICYLIC ACID [Suspect]
     Active Substance: ACETAMINOPHEN\SALICYLIC ACID
     Dosage: UNK
     Route: 048
  3. PAROXETINE. [Suspect]
     Active Substance: PAROXETINE
     Dosage: UNK
     Route: 048
  4. GABAPENTIN. [Suspect]
     Active Substance: GABAPENTIN
     Dosage: UNK
     Route: 048

REACTIONS (1)
  - Completed suicide [Fatal]

NARRATIVE: CASE EVENT DATE: 2019
